FAERS Safety Report 9253319 (Version 1)
Quarter: 2013Q2

REPORT INFORMATION
  Report Type: Spontaneous
  Country: JP (occurrence: JP)
  Receive Date: 20130424
  Receipt Date: 20130424
  Transmission Date: 20140414
  Serious: Yes (Other)
  Sender: FDA-Public Use
  Company Number: JP-MYLANLABS-2013S1008265

PATIENT
  Age: 6 Decade
  Sex: Female

DRUGS (3)
  1. EPIRUBICIN HYDROCHLORIDE [Suspect]
     Indication: BREAST CANCER
     Route: 041
     Dates: start: 20130409, end: 20130409
  2. 5-FU [Concomitant]
     Indication: BREAST CANCER
     Route: 041
     Dates: start: 20130409, end: 20130409
  3. ENDOXAN [Concomitant]
     Indication: BREAST CANCER
     Route: 041
     Dates: start: 20130409, end: 20130409

REACTIONS (1)
  - Stiff person syndrome [Recovered/Resolved]
